FAERS Safety Report 24084529 (Version 1)
Quarter: 2024Q3

REPORT INFORMATION
  Report Type: Spontaneous
  Country: US (occurrence: None)
  Receive Date: 20240711
  Receipt Date: 20240711
  Transmission Date: 20241016
  Serious: Yes (Other)
  Sender: Public
  Company Number: None

PATIENT
  Age: 70 Year
  Sex: Female
  Weight: 78.75 kg

DRUGS (10)
  1. ARNICARE [Suspect]
     Active Substance: HOMEOPATHICS
     Indication: Arthritis
     Dosage: AT BEDTIME TOPICAL ?
     Route: 061
     Dates: start: 20240629, end: 20240706
  2. CYANOCOBALAMIN [Concomitant]
     Active Substance: CYANOCOBALAMIN
  3. AMLODIPINE BESYLATE [Concomitant]
     Active Substance: AMLODIPINE BESYLATE
  4. telmisarrtan [Concomitant]
  5. ATENOLOL [Concomitant]
     Active Substance: ATENOLOL
  6. PROTONIX [Concomitant]
     Active Substance: PANTOPRAZOLE SODIUM
  7. NITROLINGUAL [Concomitant]
     Active Substance: NITROGLYCERIN
  8. HYDRALAZINE [Concomitant]
     Active Substance: HYDRALAZINE HYDROCHLORIDE
  9. ASPIRIN [Concomitant]
     Active Substance: ASPIRIN
  10. ADVIL [Concomitant]
     Active Substance: IBUPROFEN\IBUPROFEN SODIUM

REACTIONS (1)
  - Blood pressure increased [None]

NARRATIVE: CASE EVENT DATE: 20240629
